FAERS Safety Report 22224976 (Version 2)
Quarter: 2023Q2

REPORT INFORMATION
  Report Type: Spontaneous
  Country: US (occurrence: US)
  Receive Date: 20230418
  Receipt Date: 20230505
  Transmission Date: 20230722
  Serious: Yes (Other)
  Sender: FDA-Public Use
  Company Number: US-BAYER-2023A050286

PATIENT
  Age: 57 Year
  Sex: Male

DRUGS (1)
  1. JIVI [Suspect]
     Active Substance: DAMOCTOCOG ALFA PEGOL
     Dosage: INFUSE 5240 UNITS (+/-10%) PRIOR TO PROCEDURE THEN  24

REACTIONS (1)
  - Fistula repair [None]

NARRATIVE: CASE EVENT DATE: 20230316
